FAERS Safety Report 7959050-0 (Version None)
Quarter: 2011Q4

REPORT INFORMATION
  Report Type: 
  Country: None (occurrence: None)
  Receive Date: 20111206
  Receipt Date: 20111201
  Transmission Date: 20120403
  Serious: Yes (Other)
  Sender: FDA-Public Use
  Company Number: DE-PFIZER INC-2011294053

PATIENT
  Age: 76 Year
  Sex: Female

DRUGS (3)
  1. LYRICA [Suspect]
     Dosage: 25 MG, 1X/DAY
  2. LYRICA [Suspect]
     Indication: PROCEDURAL PAIN
     Dosage: 25 MG, 2X/DAY
  3. LYRICA [Suspect]
     Dosage: 25 MG, 2X/DAY

REACTIONS (3)
  - EYE INFLAMMATION [None]
  - EYE PAIN [None]
  - HEADACHE [None]
